FAERS Safety Report 6414894-1 (Version None)
Quarter: 2009Q4

REPORT INFORMATION
  Report Type: 
  Country: None (occurrence: None)
  Receive Date: 20091026
  Receipt Date: 20090605
  Transmission Date: 20100525
  Serious: No
  Sender: FDA-Public Use
  Company Number: US-ABBOTT-09P-163-0578617-00

PATIENT
  Sex: Female

DRUGS (2)
  1. LUPRON DEPOT [Suspect]
     Indication: HAEMORRHAGE
     Route: 030
     Dates: start: 20090601, end: 20090601
  2. MORENA IUD [Concomitant]
     Indication: ENDOMETRIOSIS

REACTIONS (9)
  - BLEPHAROSPASM [None]
  - BUCCAL MUCOSAL ROUGHENING [None]
  - DRY THROAT [None]
  - FEELING JITTERY [None]
  - HEADACHE [None]
  - HOT FLUSH [None]
  - HYPOAESTHESIA ORAL [None]
  - NERVOUSNESS [None]
  - PAIN [None]
